FAERS Safety Report 10476887 (Version 2)
Quarter: 2014Q3

REPORT INFORMATION
  Report Type: Report from Study
  Country: FR (occurrence: FR)
  Receive Date: 20140926
  Receipt Date: 20140926
  Transmission Date: 20150326
  Serious: Yes (Hospitalization)
  Sender: FDA-Public Use
  Company Number: FR-UCBSA-090758

PATIENT
  Age: 59 Year
  Sex: Male
  Weight: 79 kg

DRUGS (5)
  1. CORTANCYL [Suspect]
     Active Substance: PREDNISONE
     Indication: RHEUMATOID ARTHRITIS
     Dosage: 5 MG, ONCE DAILY (QD)
     Route: 048
     Dates: start: 2010
  2. CERTOLIZUMAB PEGOL RA [Suspect]
     Active Substance: CERTOLIZUMAB PEGOL
     Indication: RHEUMATOID ARTHRITIS
     Dosage: 200 MG, EV 2 WEEKS(QOW)
     Route: 058
     Dates: start: 201212, end: 20130410
  3. ARAVA [Suspect]
     Active Substance: LEFLUNOMIDE
     Dosage: DOSE: 20 MG DAILY
     Route: 048
     Dates: start: 201002, end: 201207
  4. ARAVA [Suspect]
     Active Substance: LEFLUNOMIDE
     Indication: RHEUMATOID ARTHRITIS
     Dosage: 10 MG, ONCE DAILY (QD)
     Route: 048
     Dates: start: 201207
  5. CORTANCYL [Suspect]
     Active Substance: PREDNISONE
     Dosage: 10 MG DAILY
     Route: 048
     Dates: start: 2009, end: 2010

REACTIONS (3)
  - Neuropathy peripheral [Recovering/Resolving]
  - Pneumonia [Recovered/Resolved]
  - Rash [Unknown]

NARRATIVE: CASE EVENT DATE: 20130201
